FAERS Safety Report 5162294-7 (Version None)
Quarter: 2006Q4

REPORT INFORMATION
  Report Type: 
  Country: None (occurrence: None)
  Receive Date: 20060919
  Receipt Date: 20060816
  Transmission Date: 20070319
  Serious: No
  Sender: FDA-Public Use
  Company Number: 2006US001830

PATIENT
  Age: 50 Year
  Sex: Female

DRUGS (3)
  1. VESICARE [Suspect]
     Indication: DRUG USE FOR UNKNOWN INDICATION
     Dates: start: 20060801, end: 20060816
  2. PROMETRIUM [Concomitant]
  3. MENEST (ESTROGEN CONJUGATED) [Concomitant]

REACTIONS (3)
  - DRY MOUTH [None]
  - DYSPEPSIA [None]
  - VISION BLURRED [None]
